FAERS Safety Report 9337727 (Version 1)
Quarter: 2013Q2

REPORT INFORMATION
  Report Type: Spontaneous
  Country: US (occurrence: US)
  Receive Date: 20130607
  Receipt Date: 20130607
  Transmission Date: 20140414
  Serious: No
  Sender: FDA-Public Use
  Company Number: US-ASTRAZENECA-2013SE36544

PATIENT
  Age: 50 Year
  Sex: Female

DRUGS (11)
  1. CRESTOR [Suspect]
     Route: 048
  2. ZETIA [Concomitant]
  3. VYVANSE [Concomitant]
  4. ADVIL [Concomitant]
  5. KLONOPIN [Concomitant]
     Indication: ANXIETY
  6. ZOLPIDEM [Concomitant]
     Indication: SLEEP DISORDER
  7. RANITIDINE HCL [Concomitant]
  8. PERCOCET [Concomitant]
  9. LEVOTHYROXINE SODIUM [Concomitant]
  10. VENTOLIN HFA [Concomitant]
     Indication: ASTHMA
  11. LOPID [Concomitant]

REACTIONS (1)
  - Feeling abnormal [Unknown]
